FAERS Safety Report 5013737-0 (Version None)
Quarter: 2006Q2

REPORT INFORMATION
  Report Type: 
  Country: None (occurrence: None)
  Receive Date: 20060525
  Receipt Date: 20060515
  Transmission Date: 20061013
  Serious: No
  Sender: FDA-Public Use
  Company Number: 06H-163-0308204-00

PATIENT
  Sex: 0

DRUGS (2)
  1. DEXTROSE 5% + 0.255% NACL INJECTION, USP, FLEX. CONTAINER (DEXTROSE + [Suspect]
     Dates: start: 20060101, end: 20060101
  2. SODIUM CHLORIDE [Concomitant]

REACTIONS (2)
  - ANAPHYLACTIC REACTION [None]
  - LATEX ALLERGY [None]
